FAERS Safety Report 8677849 (Version 2)
Quarter: 2013Q3

REPORT INFORMATION
  Report Type: Spontaneous
  Country: FR (occurrence: FR)
  Receive Date: 20120723
  Receipt Date: 20130716
  Transmission Date: 20140515
  Serious: Yes (Hospitalization)
  Sender: FDA-Public Use
  Company Number: PHHY2012FR062015

PATIENT
  Age: 45 Year
  Sex: Female

DRUGS (6)
  1. VOLTARENE LP [Suspect]
     Indication: SCIATICA
     Dosage: 150 MG DAILY
     Route: 048
     Dates: start: 20110924, end: 20111002
  2. LANZOR [Suspect]
     Dates: start: 20110924, end: 20111002
  3. PROFENID [Suspect]
     Indication: SCIATICA
     Dosage: 200 MG DAILY
     Dates: start: 20120203, end: 20120210
  4. XELODA [Concomitant]
     Dosage: 1650 MG, EVERY 2 DAYS
     Dates: start: 20110116, end: 20120321
  5. LEVEMIR [Concomitant]
     Dosage: 50 UNITS IN THE MORNING AND 6 UNITS IN THE EVENING
     Route: 058
     Dates: start: 20110609, end: 20120618
  6. HUMALOG [Concomitant]
     Dates: start: 2009

REACTIONS (3)
  - Liver injury [Recovered/Resolved]
  - Alanine aminotransferase increased [Recovered/Resolved]
  - Gamma-glutamyltransferase increased [Recovered/Resolved]
